FAERS Safety Report 15307997 (Version 3)
Quarter: 2024Q4

REPORT INFORMATION
  Report Type: Report from Study
  Country: US (occurrence: US)
  Receive Date: 20180822
  Receipt Date: 20241125
  Transmission Date: 20250114
  Serious: Yes (Hospitalization, Other)
  Sender: TAKEDA
  Company Number: US-SHIRE-US201831853

PATIENT
  Age: 62 Year
  Sex: Female
  Weight: 111 kg

DRUGS (21)
  1. ICATIBANT [Suspect]
     Active Substance: ICATIBANT ACETATE
     Indication: Immune system disorder
     Dosage: 30 MILLIGRAM
  2. ICATIBANT [Suspect]
     Active Substance: ICATIBANT ACETATE
  3. CINRYZE [Suspect]
     Active Substance: HUMAN C1-ESTERASE INHIBITOR
     Indication: Immune system disorder
     Dosage: 1000 INTERNATIONAL UNIT
  4. CINRYZE [Suspect]
     Active Substance: HUMAN C1-ESTERASE INHIBITOR
  5. CINRYZE [Suspect]
     Active Substance: HUMAN C1-ESTERASE INHIBITOR
  6. TAKHZYRO [Suspect]
     Active Substance: LANADELUMAB-FLYO
     Indication: Product used for unknown indication
     Dosage: UNK
  7. SODIUM CHLORIDE [Concomitant]
     Active Substance: SODIUM CHLORIDE
     Dosage: UNK
  8. STERILE WATER [Concomitant]
     Active Substance: WATER
     Dosage: UNK
  9. EPINEPHRINE [Concomitant]
     Active Substance: EPINEPHRINE
     Dosage: UNK
  10. TIZANIDINE [Concomitant]
     Active Substance: TIZANIDINE
     Dosage: UNK
  11. ZYRTEC [Concomitant]
     Active Substance: CETIRIZINE HYDROCHLORIDE
     Dosage: UNK
  12. SPIRIVA [Concomitant]
     Active Substance: TIOTROPIUM BROMIDE MONOHYDRATE
     Dosage: UNK
  13. VITAMIN D3 [Concomitant]
     Active Substance: CHOLECALCIFEROL
     Dosage: UNK
  14. VITAMIN B COMPLEX [Concomitant]
     Active Substance: CYANOCOBALAMIN\DEXPANTHENOL\NIACINAMIDE\PYRIDOXINE HYDROCHLORIDE\RIBOFLAVIN 5^-PHOSPHATE SODIUM\THIA
     Dosage: UNK
  15. CLARITIN [Concomitant]
     Active Substance: LORATADINE
     Dosage: UNK
  16. YUVAFEM [Concomitant]
     Active Substance: ESTRADIOL HEMIHYDRATE
     Dosage: UNK
  17. METHOTREXATE [Concomitant]
     Active Substance: METHOTREXATE
     Dosage: UNK
  18. COENZYME Q10 [Concomitant]
     Active Substance: DIETARY SUPPLEMENT\UBIDECARENONE
     Indication: Product used for unknown indication
     Dosage: UNK
  19. GABAPENTIN [Concomitant]
     Active Substance: GABAPENTIN
     Dosage: UNK
  20. FOLIC ACID [Concomitant]
     Active Substance: FOLIC ACID
     Dosage: UNK
  21. AZELASTINE [Concomitant]
     Active Substance: AZELASTINE
     Dosage: UNK

REACTIONS (14)
  - Appendix disorder [Recovered/Resolved]
  - Vaginal infection [Recovered/Resolved]
  - Nephrolithiasis [Unknown]
  - Respiratory tract infection [Unknown]
  - Weight decreased [Unknown]
  - Arthralgia [Unknown]
  - Back pain [Unknown]
  - Muscle spasms [Unknown]
  - Renal pain [Unknown]
  - Vomiting [Unknown]
  - Hereditary angioedema [Unknown]
  - Infusion related reaction [Unknown]
  - Sinusitis [Unknown]
  - Pruritus [Unknown]

NARRATIVE: CASE EVENT DATE: 20180813
